FAERS Safety Report 8300789-5 (Version None)
Quarter: 2012Q2

REPORT INFORMATION
  Report Type: 
  Country: None (occurrence: None)
  Receive Date: 20120420
  Receipt Date: 20120418
  Transmission Date: 20120825
  Serious: Yes (Death, Hospitalization)
  Sender: FDA-Public Use
  Company Number: PHHY2012ES012887

PATIENT
  Age: 78 Year
  Sex: Male

DRUGS (5)
  1. EXJADE [Suspect]
     Indication: MYELODYSPLASTIC SYNDROME
     Dosage: 20 MG/KG, DAILY
     Dates: start: 20120119
  2. EXJADE [Suspect]
     Dosage: 7 MG/KG, DAILY
  3. EXJADE [Suspect]
     Dosage: 1 DF, DAILY
     Dates: start: 20120122, end: 20120127
  4. HYDROCHLOROTHIAZIDE [Concomitant]
     Dosage: UNK
  5. CAPTOPRIL [Concomitant]
     Dosage: UNK

REACTIONS (9)
  - CHOROIDAL INFARCTION [None]
  - LACRIMATION INCREASED [None]
  - TEMPORAL ARTERITIS [None]
  - HEADACHE [None]
  - CONFUSIONAL STATE [None]
  - PYREXIA [None]
  - SOMNOLENCE [None]
  - OCULAR DISCOMFORT [None]
  - BLINDNESS [None]
